FAERS Safety Report 10196426 (Version 1)
Quarter: 2014Q2

REPORT INFORMATION
  Report Type: Spontaneous
  Country: BR (occurrence: BR)
  Receive Date: 20140527
  Receipt Date: 20140527
  Transmission Date: 20141212
  Serious: Yes (Hospitalization, Other)
  Sender: FDA-Public Use
  Company Number: BR-JNJFOC-20140511144

PATIENT
  Sex: Female

DRUGS (1)
  1. MICRONOR [Suspect]
     Indication: CONTRACEPTION
     Route: 048

REACTIONS (5)
  - Pregnancy on oral contraceptive [Not Recovered/Not Resolved]
  - Anaemia [Unknown]
  - Obesity surgery [Unknown]
  - Exposure during pregnancy [Not Recovered/Not Resolved]
  - Nervousness [Unknown]
